FAERS Safety Report 5454488-8 (Version None)
Quarter: 2007Q3

REPORT INFORMATION
  Report Type: 
  Country: None (occurrence: None)
  Receive Date: 20070917
  Receipt Date: 20070906
  Transmission Date: 20080115
  Serious: Yes (Other)
  Sender: FDA-Public Use
  Company Number: HQWYE051206SEP07

PATIENT
  Sex: Male

DRUGS (3)
  1. PANTOPRAZOLE SODIUM [Suspect]
     Dosage: UNKNOWN
  2. CLARITHROMYCIN [Suspect]
     Dosage: UNKNOWN
  3. AMOXICILLIN [Suspect]
     Dosage: UNKNOWN

REACTIONS (2)
  - PANIC ATTACK [None]
  - SUICIDAL IDEATION [None]
